FAERS Safety Report 8379065-0 (Version None)
Quarter: 2012Q2

REPORT INFORMATION
  Report Type: 
  Country: None (occurrence: None)
  Receive Date: 20120522
  Receipt Date: 20120522
  Transmission Date: 20120825
  Serious: Yes (Hospitalization)
  Sender: FDA-Public Use
  Company Number: None

PATIENT
  Sex: Male

DRUGS (1)
  1. ADCIRCA [Suspect]
     Indication: PULMONARY ARTERIAL HYPERTENSION
     Dosage: 20 MG DAILY PO
     Route: 048
     Dates: start: 20120424

REACTIONS (4)
  - ASTHENIA [None]
  - DYSPNOEA [None]
  - BALANCE DISORDER [None]
  - INSOMNIA [None]
